FAERS Safety Report 10041646 (Version 1)
Quarter: 2014Q1

REPORT INFORMATION
  Report Type: Spontaneous
  Country: US (occurrence: US)
  Receive Date: 20140327
  Receipt Date: 20140327
  Transmission Date: 20141002
  Serious: Yes (Other)
  Sender: FDA-Public Use
  Company Number: US-BAYER-2014-041904

PATIENT
  Age: 19 Year
  Sex: Male
  Weight: 88.89 kg

DRUGS (1)
  1. ALEVE GELCAPS [Suspect]
     Dosage: 5 DF, ONCE
     Route: 048
     Dates: start: 20140317, end: 20140317

REACTIONS (2)
  - Self injurious behaviour [None]
  - Drug abuse [None]
